FAERS Safety Report 17408116 (Version 2)
Quarter: 2020Q2

REPORT INFORMATION
  Report Type: Spontaneous
  Country: JP (occurrence: JP)
  Receive Date: 20200212
  Receipt Date: 20200407
  Transmission Date: 20200713
  Serious: Yes (Hospitalization)
  Sender: FDA-Public Use
  Company Number: NVSJ2020JP001793

PATIENT
  Age: 48 Year
  Sex: Female

DRUGS (1)
  1. PAZOPANIB [Suspect]
     Active Substance: PAZOPANIB
     Indication: RENAL NEOPLASM
     Dosage: 800 MG, UNK
     Route: 048

REACTIONS (4)
  - Cardiac failure congestive [Recovered/Resolved]
  - Dyspnoea [Unknown]
  - Cardiomyopathy [Recovered/Resolved]
  - Cardiomegaly [Unknown]
